FAERS Safety Report 15088615 (Version 1)
Quarter: 2018Q2

REPORT INFORMATION
  Report Type: Spontaneous
  Country: PT (occurrence: PT)
  Receive Date: 20180629
  Receipt Date: 20180629
  Transmission Date: 20180711
  Serious: Yes (Hospitalization, Disabling, Other)
  Sender: FDA-Public Use
  Company Number: PT-AUROBINDO-AUR-APL-2018-033064

PATIENT
  Age: 48 Year
  Sex: Male
  Weight: 61.4 kg

DRUGS (4)
  1. PREDNISOLONE. [Concomitant]
     Active Substance: PREDNISOLONE
     Indication: ACUTE GRAFT VERSUS HOST DISEASE
     Dosage: 120 MILLIGRAM, DAILY, LAST DOSE: 23/APR/2018
     Route: 048
     Dates: start: 20180224
  2. VALGANCICLOVIR. [Suspect]
     Active Substance: VALGANCICLOVIR
     Indication: CYTOMEGALOVIRUS INFECTION
     Dosage: UNK
     Route: 065
  3. VALGANCICLOVIR. [Suspect]
     Active Substance: VALGANCICLOVIR
     Indication: ACUTE GRAFT VERSUS HOST DISEASE
     Dosage: 900 MILLIGRAM, UNK
     Route: 065
     Dates: start: 20180402, end: 20180423
  4. ITACITINIB [Concomitant]
     Active Substance: ITACITINIB
     Indication: PRODUCT USED FOR UNKNOWN INDICATION
     Dosage: 100 MILLIGRAM, DAILY, LAST DOSE: 23/APR/2018
     Route: 065
     Dates: start: 20180226, end: 20180507

REACTIONS (3)
  - Thrombocytopenia [Not Recovered/Not Resolved]
  - Neutrophil count decreased [Recovered/Resolved]
  - Bacteraemia [Recovering/Resolving]

NARRATIVE: CASE EVENT DATE: 20180420
